FAERS Safety Report 13119245 (Version 1)
Quarter: 2017Q1

REPORT INFORMATION
  Report Type: Spontaneous
  Country: US (occurrence: US)
  Receive Date: 20170116
  Receipt Date: 20170116
  Transmission Date: 20170428
  Serious: Yes (Other)
  Sender: FDA-Public Use
  Company Number: US-CHIESI USA INC.-US-2016CHI000187

PATIENT

DRUGS (1)
  1. CUROSURF [Suspect]
     Active Substance: PORACTANT ALFA
     Indication: NEONATAL RESPIRATORY DISTRESS SYNDROME
     Dosage: 1.5 ML, SINGLE
     Route: 055
     Dates: start: 20160620

REACTIONS (1)
  - Pulmonary interstitial emphysema syndrome [Unknown]

NARRATIVE: CASE EVENT DATE: 20160622
